FAERS Safety Report 23921852 (Version 1)
Quarter: 2024Q2

REPORT INFORMATION
  Report Type: Spontaneous
  Country: KR (occurrence: KR)
  Receive Date: 20240530
  Receipt Date: 20240530
  Transmission Date: 20240716
  Serious: Yes (Other)
  Sender: FDA-Public Use
  Company Number: KR-JNJFOC-20240569068

PATIENT
  Age: 49 Year
  Sex: Male

DRUGS (2)
  1. OPSUMIT [Suspect]
     Active Substance: MACITENTAN
     Indication: Pulmonary hypertension
     Route: 048
  2. DIGOXIN [Concomitant]
     Active Substance: DIGOXIN
     Route: 048

REACTIONS (1)
  - Condition aggravated [Not Recovered/Not Resolved]
